FAERS Safety Report 6230363-6 (Version None)
Quarter: 2009Q2

REPORT INFORMATION
  Report Type: 
  Country: None (occurrence: None)
  Receive Date: 20090611
  Receipt Date: 20090529
  Transmission Date: 20091009
  Serious: Yes (Hospitalization, Other)
  Sender: FDA-Public Use
  Company Number: PAR_03025_2009

PATIENT
  Age: 5 Year
  Sex: Male

DRUGS (6)
  1. IBUPROFEN [Suspect]
     Indication: PYREXIA
     Dosage: (100 MG 1X RECTAL)
     Route: 054
  2. ACETAMINOPHEN [Suspect]
     Indication: PYREXIA
     Dosage: (DF)
  3. AZATHIOPRINE [Concomitant]
  4. CYCLOSPORINE [Concomitant]
  5. PREDNISOLONE [Concomitant]
  6. ANTIHYPERTENSIVES [Concomitant]

REACTIONS (2)
  - ANURIA [None]
  - BLOOD CREATININE INCREASED [None]
